FAERS Safety Report 9139938 (Version 1)
Quarter: 2013Q1

REPORT INFORMATION
  Report Type: Spontaneous
  Country: US (occurrence: US)
  Receive Date: 20130305
  Receipt Date: 20130305
  Transmission Date: 20140127
  Serious: Yes (Hospitalization)
  Sender: FDA-Public Use
  Company Number: US-ENDO PHARMACEUTICALS INC.-NUBN20120002

PATIENT
  Age: 0 Year
  Sex: Female

DRUGS (1)
  1. NUBAIN [Suspect]
     Indication: FOETAL EXPOSURE TIMING UNSPECIFIED
     Dosage: 1/2 DOSE
     Route: 064
     Dates: start: 20120126, end: 20120126

REACTIONS (1)
  - Cyanosis [Recovered/Resolved]
